FAERS Safety Report 12398090 (Version 1)
Quarter: 2016Q2

REPORT INFORMATION
  Report Type: Spontaneous
  Country: US (occurrence: US)
  Receive Date: 20160524
  Receipt Date: 20160524
  Transmission Date: 20160815
  Serious: No
  Sender: FDA-Public Use
  Company Number: US-MYLANLABS-2016M1003175

PATIENT
  Sex: Female

DRUGS (3)
  1. AMITRIPTYLINE HYDROCHLORIDE TABLETS, USP [Suspect]
     Active Substance: AMITRIPTYLINE HYDROCHLORIDE
     Indication: INSOMNIA
     Dosage: 25 MG,HS, EVERY NIGHT PO
     Route: 048
     Dates: end: 201501
  2. ALEVE [Suspect]
     Active Substance: NAPROXEN SODIUM
     Dosage: UNK
  3. AMITRIPTYLINE HYDROCHLORIDE TABLETS, USP [Suspect]
     Active Substance: AMITRIPTYLINE HYDROCHLORIDE
     Indication: OFF LABEL USE

REACTIONS (3)
  - Dyspepsia [Not Recovered/Not Resolved]
  - Hypoaesthesia [Recovered/Resolved]
  - Reaction to drug excipients [Recovered/Resolved]

NARRATIVE: CASE EVENT DATE: 201408
